FAERS Safety Report 9644201 (Version 1)
Quarter: 2013Q4

REPORT INFORMATION
  Report Type: Spontaneous
  Country: FR (occurrence: FR)
  Receive Date: 20131024
  Receipt Date: 20131024
  Transmission Date: 20140711
  Serious: Yes (Hospitalization)
  Sender: FDA-Public Use
  Company Number: FR-ROCHE-1291965

PATIENT
  Age: 91 Year
  Sex: Male

DRUGS (7)
  1. ROCEPHINE [Suspect]
     Indication: LUNG INFECTION
     Route: 058
     Dates: end: 20130503
  2. PREVISCAN (FRANCE) [Suspect]
     Indication: ATRIAL FIBRILLATION
     Route: 048
     Dates: end: 20130507
  3. LASILIX [Concomitant]
  4. COVERSYL [Concomitant]
  5. SPIRONOLACTONE [Concomitant]
  6. BISOPROLOL [Concomitant]
  7. PERMIXON [Concomitant]

REACTIONS (2)
  - Abdominal wall haematoma [Recovering/Resolving]
  - Haemorrhagic anaemia [Unknown]
